FAERS Safety Report 17745566 (Version 4)
Quarter: 2020Q2

REPORT INFORMATION
  Report Type: Spontaneous
  Country: DE (occurrence: DE)
  Receive Date: 20200505
  Receipt Date: 20200604
  Transmission Date: 20200714
  Serious: Yes (Hospitalization)
  Sender: FDA-Public Use
  Company Number: DE-ABBVIE-20K-062-3389840-00

PATIENT
  Age: 37 Year
  Sex: Male
  Weight: 135 kg

DRUGS (2)
  1. SKYRIZI [Suspect]
     Active Substance: RISANKIZUMAB-RZAA
     Indication: PSORIASIS
     Route: 058
     Dates: start: 20190904
  2. SKYRIZI [Suspect]
     Active Substance: RISANKIZUMAB-RZAA
     Indication: PSORIASIS
     Dosage: ACCORDING THE LABEL
     Route: 058
     Dates: start: 201908, end: 2019

REACTIONS (2)
  - Schizophrenia [Recovered/Resolved with Sequelae]
  - Platelet count decreased [Unknown]

NARRATIVE: CASE EVENT DATE: 20200312
